FAERS Safety Report 26090751 (Version 1)
Quarter: 2025Q4

REPORT INFORMATION
  Report Type: Spontaneous
  Country: GB (occurrence: GB)
  Receive Date: 20251126
  Receipt Date: 20251126
  Transmission Date: 20260118
  Serious: Yes (Other)
  Sender: AUROBINDO
  Company Number: GB-MHRA-TPP28121400C32438054YC1762939658443

PATIENT
  Age: 38 Year
  Sex: Female
  Weight: 59 kg

DRUGS (6)
  1. CIPROFLOXACIN [Suspect]
     Active Substance: CIPROFLOXACIN
     Indication: Ill-defined disorder
     Dosage: UNK
     Route: 065
  2. AMITRIPTYLINE HYDROCHLORIDE [Concomitant]
     Active Substance: AMITRIPTYLINE HYDROCHLORIDE
     Indication: Ill-defined disorder
     Dosage: TAKE ONE AT NIGHT, INCREASE BY AN ADDITIONAL TABLET EVERY 3 NIGHTS, UP TO A MAXIMUM OF 4 AT NIGHT.
     Route: 065
     Dates: start: 20251014, end: 20251111
  3. NITROFURANTOIN [Concomitant]
     Active Substance: NITROFURANTOIN
     Indication: Ill-defined disorder
     Dosage: 100MG MODIFIED RELEASE CAPSULE TWICE A DAY (EVE...
     Route: 065
     Dates: start: 20251028, end: 20251031
  4. AMDINOCILLIN PIVOXIL [Concomitant]
     Active Substance: AMDINOCILLIN PIVOXIL
     Indication: Ill-defined disorder
     Dosage: TAKE TWO IMMEDIATELY, THEN ONE 3 TIMES/DAY FOR ...
     Route: 065
     Dates: start: 20251103, end: 20251110
  5. FLUCLOXACILLIN [Concomitant]
     Active Substance: FLUCLOXACILLIN
     Indication: Ill-defined disorder
     Dosage: TAKE ONE CAPSULE FOUR TIMES A DAY (DAILY = 2G) ...
     Route: 065
  6. LEVOTHYROXINE [Concomitant]
     Active Substance: LEVOTHYROXINE
     Indication: Ill-defined disorder
     Dosage: TAKE ONE DAILY
     Route: 065

REACTIONS (1)
  - Complex regional pain syndrome [Not Recovered/Not Resolved]

NARRATIVE: CASE EVENT DATE: 20241117
